FAERS Safety Report 7301464-6 (Version None)
Quarter: 2011Q1

REPORT INFORMATION
  Report Type: 
  Country: None (occurrence: None)
  Receive Date: 20110114
  Receipt Date: 20101123
  Transmission Date: 20110831
  Serious: Yes (Other)
  Sender: FDA-Public Use
  Company Number: ADE10-003

PATIENT
  Age: 44 Year
  Sex: Male
  Weight: 61.5 kg

DRUGS (1)
  1. HEPARIN SODIUM [Suspect]
     Indication: INTRAVENOUS CATHETER MANAGEMENT
     Dosage: 3000 UNITS, ONCE, I.V.
     Route: 042
     Dates: start: 20101122

REACTIONS (2)
  - ABDOMINAL PAIN [None]
  - NAUSEA [None]
